FAERS Safety Report 12664399 (Version 2)
Quarter: 2016Q3

REPORT INFORMATION
  Report Type: Spontaneous
  Country: None (occurrence: US)
  Receive Date: 20160818
  Receipt Date: 20160916
  Transmission Date: 20161109
  Serious: No
  Sender: FDA-Public Use
  Company Number: US-MEDAC PHARMA, INC.-1056480

PATIENT
  Age: 70 Year
  Sex: Female
  Weight: 77.27 kg

DRUGS (12)
  1. RASUVO [Suspect]
     Active Substance: METHOTREXATE SODIUM
     Indication: ARTHRALGIA
     Dates: start: 20160715, end: 20160715
  2. PREDNISONE. [Suspect]
     Active Substance: PREDNISONE
     Dates: start: 20160626, end: 201607
  3. MAGNESIUM [Concomitant]
     Active Substance: MAGNESIUM
  4. WARFARIN SODIUM. [Concomitant]
     Active Substance: WARFARIN SODIUM
  5. FOLIC ACID. [Concomitant]
     Active Substance: FOLIC ACID
  6. RASUVO [Suspect]
     Active Substance: METHOTREXATE SODIUM
     Indication: BACK PAIN
     Dates: start: 20160715, end: 20160715
  7. METOPROLOL SUCCINATE. [Concomitant]
     Active Substance: METOPROLOL SUCCINATE
  8. RASUVO [Suspect]
     Active Substance: METHOTREXATE SODIUM
     Indication: MUSCULOSKELETAL PAIN
     Dates: start: 20160715, end: 20160715
  9. RASUVO [Suspect]
     Active Substance: METHOTREXATE SODIUM
     Indication: PAIN IN EXTREMITY
     Dates: start: 20160715, end: 20160715
  10. VITAMIN C CHEWABLE [Concomitant]
  11. VITAMIN D3DIETARY SUPPLEMEN DIETARY SUPPLEMENT [Concomitant]
     Active Substance: ALPHA-TOCOPHEROL\CHOLECALCIFEROL
  12. VITAMIN B COMPLEX [Concomitant]
     Active Substance: CYANOCOBALAMIN\DEXPANTHENOL\NIACINAMIDE\PYRIDOXINE HYDROCHLORIDE\RIBOFLAVIN 5^-PHOSPHATE SODIUM\THIAMINE HYDROCHLORIDE\VITAMIN B COMPLEX

REACTIONS (3)
  - Pain [None]
  - Visual impairment [None]
  - Dizziness [None]

NARRATIVE: CASE EVENT DATE: 20160717
